FAERS Safety Report 22606396 (Version 1)
Quarter: 2023Q2

REPORT INFORMATION
  Report Type: Spontaneous
  Country: DE (occurrence: DE)
  Receive Date: 20230615
  Receipt Date: 20230615
  Transmission Date: 20230721
  Serious: Yes (Hospitalization)
  Sender: FDA-Public Use
  Company Number: None

PATIENT
  Age: 41 Year
  Sex: Male

DRUGS (8)
  1. RISPERIDONE [Suspect]
     Active Substance: RISPERIDONE
     Indication: Product used for unknown indication
     Dosage: 1-0-1 DAILY DOSE: 2 MG MILLIGRAM(S) EVERY DAY
     Route: 048
     Dates: start: 200903
  2. LAMOTRIGINE [Suspect]
     Active Substance: LAMOTRIGINE
     Indication: Product used for unknown indication
     Dosage: 1-0-2 DAILY DOSE: 200 MG MILLIGRAM(S) EVERY DAY
     Route: 048
     Dates: start: 201006
  3. AKINETON [Suspect]
     Active Substance: BIPERIDEN HYDROCHLORIDE
     Indication: Product used for unknown indication
     Dosage: 1/2-0-1/2 DAILY DOSE: 4 MG MILLIGRAM(S) EVERY DAY
     Route: 048
     Dates: start: 200504
  4. PERAZINE [Suspect]
     Active Substance: PERAZINE
     Indication: Product used for unknown indication
     Dosage: 1-0-2 DAILY DOSE: 200 MG MILLIGRAM(S) EVERY DAY
     Route: 048
     Dates: start: 201009
  5. LORAZEPAM [Suspect]
     Active Substance: LORAZEPAM
     Indication: Product used for unknown indication
     Dosage: 3 X 1 DAILY DOSE: 3 MG MILLIGRAM(S) EVERY DAY
     Route: 048
     Dates: start: 201006
  6. THIORIDAZINE [Suspect]
     Active Substance: THIORIDAZINE
     Indication: Product used for unknown indication
     Dosage: 1-1-1 DAILY DOSE: 300 MG MILLIGRAM(S) EVERY DAY
     Route: 048
     Dates: start: 200711
  7. CARBAMAZEPINE [Suspect]
     Active Substance: CARBAMAZEPINE
     Indication: Product used for unknown indication
     Dosage: 1-1-0 DAILY DOSE: 400 MG MILLIGRAM(S) EVERY DAY
     Route: 048
     Dates: start: 200903
  8. CEFUROXIME [Concomitant]
     Active Substance: CEFUROXIME
     Indication: Bronchitis

REACTIONS (3)
  - Thrombocytopenia [Recovered/Resolved]
  - Acute hepatic failure [Recovered/Resolved]
  - Acute kidney injury [Recovered/Resolved]

NARRATIVE: CASE EVENT DATE: 20110211
